FAERS Safety Report 7274357-0 (Version None)
Quarter: 2011Q1

REPORT INFORMATION
  Report Type: 
  Country: None (occurrence: None)
  Receive Date: 20110131
  Receipt Date: 20110131
  Transmission Date: 20110831
  Serious: Yes (Hospitalization)
  Sender: FDA-Public Use
  Company Number: None

PATIENT
  Sex: Female
  Weight: 64.592 kg

DRUGS (4)
  1. REGLAN [Concomitant]
  2. PROCHLORPERAZINE [Concomitant]
  3. PAZOPANIB [Suspect]
     Indication: LUNG CANCER METASTATIC
     Dosage: 20 PILLS ONCE DAILY ORAL
     Route: 048
     Dates: start: 20110112, end: 20110119
  4. PAZOPANIB [Suspect]
     Indication: LUNG CANCER METASTATIC
     Dosage: 20 PILLS ONCE DAILY ORAL
     Route: 048
     Dates: start: 20110119, end: 20110201

REACTIONS (7)
  - NEUTROPENIA [None]
  - DYSPNOEA [None]
  - ABDOMINAL PAIN UPPER [None]
  - BLOOD CREATININE INCREASED [None]
  - CHEST PAIN [None]
  - HYPOPHAGIA [None]
  - BACK PAIN [None]
